FAERS Safety Report 9506050 (Version 1)
Quarter: 2013Q1

REPORT INFORMATION
  Report Type: Spontaneous
  Country: US (occurrence: None)
  Receive Date: 20130305
  Receipt Date: 20130305
  Transmission Date: 20140127
  Serious: No
  Sender: FDA-Public Use
  Company Number: AXC-2012-000278

PATIENT
  Age: 42 Year
  Sex: Male
  Weight: 117 kg

DRUGS (8)
  1. CANASA (MESALAMINE) SUPPOSITORY, 1000MG [Suspect]
     Indication: PROCTITIS ULCERATIVE
     Route: 054
     Dates: start: 20120420, end: 20120520
  2. CETRI INE (CETIR INE HYDROCHLORIDE) [Concomitant]
  3. LISINOPRIL/HYDROCHLOROTHIAIDE (HYDROCHLOROTHIAIDE, LISINOPRIL) [Concomitant]
  4. SIMVASTATIN (SIMVASTATIN) [Concomitant]
  5. SINGULAIR [Concomitant]
  6. VYVANSE (LISDEXAMFETAMINE MESILATE) [Concomitant]
  7. OLPIDEM (OLPIDEM) [Concomitant]
  8. MIRALAX [Concomitant]

REACTIONS (1)
  - Rash [None]
